FAERS Safety Report 4949422-0 (Version None)
Quarter: 2006Q1

REPORT INFORMATION
  Report Type: 
  Country: None (occurrence: None)
  Receive Date: 20060321
  Receipt Date: 20060306
  Transmission Date: 20060701
  Serious: Yes (Death, Hospitalization, Other)
  Sender: FDA-Public Use
  Company Number: US-AMGEN-US171478

PATIENT
  Sex: Male

DRUGS (3)
  1. ENBREL [Suspect]
     Indication: PSORIATIC ARTHROPATHY
     Route: 058
     Dates: start: 20030101, end: 20060207
  2. LEXAPRO [Concomitant]
  3. CYCLOBENZAPRINE HCL [Concomitant]

REACTIONS (12)
  - BACTERAEMIA [None]
  - CONFUSIONAL STATE [None]
  - ENCEPHALITIS [None]
  - FUNGAL INFECTION [None]
  - GENERAL PHYSICAL HEALTH DETERIORATION [None]
  - HEPATITIS [None]
  - HERPES SIMPLEX [None]
  - OEDEMATOUS PANCREATITIS [None]
  - PNEUMONIA [None]
  - RENAL FAILURE [None]
  - RESPIRATORY FAILURE [None]
  - SINUSITIS [None]
